FAERS Safety Report 5282276-4 (Version None)
Quarter: 2007Q1

REPORT INFORMATION
  Report Type: 
  Country: None (occurrence: None)
  Receive Date: 20070331
  Receipt Date: 20070321
  Transmission Date: 20070707
  Serious: Yes (Hospitalization, Other)
  Sender: FDA-Public Use
  Company Number: DE-PFIZER INC-2007023115

PATIENT
  Sex: Male

DRUGS (5)
  1. INSPRA [Suspect]
     Indication: CARDIAC FAILURE
     Route: 048
  2. HYDROCHLOROTHIAZIDE [Concomitant]
  3. LORZAAR [Concomitant]
  4. TAMBOCOR [Concomitant]
  5. ALDACTONE [Concomitant]

REACTIONS (3)
  - ATRIAL FIBRILLATION [None]
  - HYPERKALAEMIA [None]
  - TACHYCARDIA [None]
